FAERS Safety Report 10557871 (Version 2)
Quarter: 2021Q2

REPORT INFORMATION
  Report Type: Spontaneous
  Country: CA (occurrence: CA)
  Receive Date: 20141031
  Receipt Date: 20210510
  Transmission Date: 20210716
  Serious: Yes (Death, Hospitalization, Other)
  Sender: FDA-Public Use
  Company Number: CA-PFIZER INC-2014298345

PATIENT
  Age: 41 Year
  Sex: Female

DRUGS (8)
  1. SPIRONOLACTONE. [Concomitant]
     Active Substance: SPIRONOLACTONE
     Dosage: UNK
  2. ZAROXOLYN [Concomitant]
     Active Substance: METOLAZONE
     Dosage: UNK
  3. TYLENOL [Concomitant]
     Active Substance: ACETAMINOPHEN
     Dosage: UNK
  4. CARIPUL [Suspect]
     Active Substance: EPOPROSTENOL
     Dosage: UNK
     Dates: end: 20141018
  5. MIDODRINE [Concomitant]
     Active Substance: MIDODRINE
     Dosage: UNK
  6. REVATIO [Suspect]
     Active Substance: SILDENAFIL CITRATE
     Indication: PULMONARY ARTERIAL HYPERTENSION
     Dosage: 20 MG, 3X/DAY
     Route: 048
     Dates: start: 20140526
  7. FUROSEMIDE. [Concomitant]
     Active Substance: FUROSEMIDE
     Dosage: UNK
  8. POTASSIUM [Concomitant]
     Active Substance: POTASSIUM
     Dosage: UNK

REACTIONS (2)
  - Lung disorder [Unknown]
  - Death [Fatal]

NARRATIVE: CASE EVENT DATE: 201410
